FAERS Safety Report 15499896 (Version 2)
Quarter: 2020Q3

REPORT INFORMATION
  Report Type: Spontaneous
  Country: DE (occurrence: DE)
  Receive Date: 20181015
  Receipt Date: 20200821
  Transmission Date: 20201102
  Serious: Yes (Other)
  Sender: FDA-Public Use
  Company Number: PHHY2015DE015924

PATIENT
  Sex: Female
  Weight: 3.1 kg

DRUGS (8)
  1. VINCRISTINE [Suspect]
     Active Substance: VINCRISTINE
     Indication: RHABDOID TUMOUR
     Dosage: UNK, DURING FIRST AND SECOND CYCLE? 100 PERCENT, FIFTH? 80 PERCENT, SIXTH 70 PERCENT
     Route: 065
  2. DOXORUBICIN [Suspect]
     Active Substance: DOXORUBICIN
     Indication: RHABDOID TUMOUR
     Dosage: UNK, DURING FIRST AND SECOND CYCLE? 100 PERCENT, FIFTH? 80 PERCENT, SIXTH 70 PERCENT
     Route: 042
  3. IFOSFAMIDE. [Suspect]
     Active Substance: IFOSFAMIDE
     Indication: RHABDOID TUMOUR
     Dosage: UNK, DURING THIRD CYCLE 66 PERCENT; FOURTH 80 PERCENT
     Route: 065
  4. CYCLOPHOSPHAMIDE. [Suspect]
     Active Substance: CYCLOPHOSPHAMIDE
     Indication: RHABDOID TUMOUR
     Dosage: UNK, DURING FIRST AND SECOND CYCLE? 100 PERCENT, FIFTH? 80 PERCENT, SIXTH 70 PERCENT
     Route: 065
  5. ETOPOSIDE. [Suspect]
     Active Substance: ETOPOSIDE
     Indication: RHABDOID TUMOUR
     Dosage: UNK, DURING THIRD CYCLE 66 PERCENT; FOURTH 80 PERCENT
     Route: 065
  6. METHOTREXATE. [Concomitant]
     Active Substance: METHOTREXATE
     Indication: PRODUCT USED FOR UNKNOWN INDICATION
     Dosage: UNK
     Route: 039
  7. CARBOPLATIN. [Suspect]
     Active Substance: CARBOPLATIN
     Indication: RHABDOID TUMOUR
     Dosage: UNK, DURING THIRD CYCLE 66 PERCENT; FOURTH 80 PERCENT
     Route: 065
  8. TANDEM DHA [Concomitant]
     Active Substance: ASCORBIC ACID\FERROUS FUMARATE\FOLIC ACID\IRON\OMEGA-3-ACID ETHYL ESTERS\PYRIDOXINE HYDROCHLORIDE
     Indication: PRODUCT USED FOR UNKNOWN INDICATION
     Dosage: UNK
     Route: 065

REACTIONS (5)
  - Neutropenia [Recovered/Resolved]
  - Pyrexia [Recovered/Resolved]
  - Vomiting [Recovered/Resolved]
  - Product use in unapproved indication [Unknown]
  - Febrile neutropenia [Recovered/Resolved]
